FAERS Safety Report 24345895 (Version 2)
Quarter: 2024Q4

REPORT INFORMATION
  Report Type: Report from Study
  Country: NL (occurrence: NL)
  Receive Date: 20240920
  Receipt Date: 20241016
  Transmission Date: 20250115
  Serious: Yes (Death, Other)
  Sender: GILEAD
  Company Number: NL-GILEAD-2024-0688001

PATIENT
  Sex: Male
  Weight: 86 kg

DRUGS (2)
  1. BREXUCABTAGENE AUTOLEUCEL [Suspect]
     Active Substance: BREXUCABTAGENE AUTOLEUCEL
     Indication: Mantle cell lymphoma
     Dosage: UNK
     Route: 042
     Dates: start: 20200915, end: 20200915
  2. IBRUTINIB [Concomitant]
     Active Substance: IBRUTINIB
     Dosage: 560 MG
     Dates: start: 202311

REACTIONS (2)
  - Disease progression [Fatal]
  - Death [Fatal]

NARRATIVE: CASE EVENT DATE: 20240806
